FAERS Safety Report 17589979 (Version 1)
Quarter: 2020Q1

REPORT INFORMATION
  Report Type: Spontaneous
  Country: US (occurrence: US)
  Receive Date: 20200327
  Receipt Date: 20200327
  Transmission Date: 20200409
  Serious: Yes (Hospitalization, Other)
  Sender: FDA-Public Use
  Company Number: US-SGP-000006

PATIENT
  Age: 16 Year

DRUGS (1)
  1. METHYLPREDNISOLONE. [Suspect]
     Active Substance: METHYLPREDNISOLONE
     Indication: TRAUMATIC LUNG INJURY
     Route: 042

REACTIONS (4)
  - Pneumomediastinum [Unknown]
  - Pulmonary air leakage [Unknown]
  - Product use in unapproved indication [Unknown]
  - Pneumothorax [Unknown]
